FAERS Safety Report 8882806 (Version 4)
Quarter: 2012Q4

REPORT INFORMATION
  Report Type: 
  Country: JP (occurrence: JP)
  Receive Date: 20121103
  Receipt Date: 20121206
  Transmission Date: 20130627
  Serious: Yes (Disabling, Other)
  Sender: FDA-Public Use
  Company Number: JP-009507513-1211JPN000138

PATIENT
  Age: 83 Year
  Sex: Male
  Weight: 78.7 kg

DRUGS (19)
  1. GASTER [Suspect]
     Indication: PROPHYLAXIS AGAINST GASTROINTESTINAL ULCER
     Dosage: 20 mg, qd
     Dates: start: 20121024, end: 20121026
  2. NAUZELIN [Suspect]
     Indication: DECREASED APPETITE
     Dosage: 5 mg, tid
     Route: 048
     Dates: start: 20121016, end: 20121023
  3. PRIMPERAN [Suspect]
     Indication: DECREASED APPETITE
     Dosage: 10 mg, qd
     Dates: start: 20121024, end: 20121026
  4. PREDNISOLONE [Concomitant]
     Indication: RENAL FAILURE ACUTE
     Dosage: UNK
     Route: 048
     Dates: start: 20120928, end: 20121023
  5. PREDNISOLONE [Concomitant]
     Indication: IGA NEPHROPATHY
  6. PREDONINE [Concomitant]
     Indication: RENAL FAILURE ACUTE
     Dosage: UNK
     Dates: start: 20121024
  7. PREDONINE [Concomitant]
     Indication: IGA NEPHROPATHY
  8. FEBURIC [Concomitant]
     Indication: HYPERURICAEMIA
     Dosage: UNK
     Route: 048
     Dates: start: 20120920, end: 20121024
  9. NU-LOTAN TABLET 50 [Concomitant]
     Dosage: UNK
     Route: 048
     Dates: start: 20120925, end: 20121008
  10. COMELIAN [Concomitant]
     Dosage: UNK
     Route: 048
     Dates: start: 20121001, end: 20121024
  11. ALFAROL [Concomitant]
     Indication: OSTEOPOROSIS PROPHYLAXIS
     Dosage: UNK
     Route: 048
     Dates: start: 20121001, end: 20121024
  12. LASIX (FUROSEMIDE) [Concomitant]
     Dosage: UNK
     Route: 048
     Dates: start: 20120913, end: 20121024
  13. BAKTAR [Concomitant]
     Indication: ANTIFUNGAL PROPHYLAXIS
     Dosage: UNK
     Route: 048
     Dates: start: 20120928, end: 20121014
  14. TAKEPRON [Concomitant]
     Indication: PROPHYLAXIS AGAINST GASTROINTESTINAL ULCER
     Dosage: UNK
     Route: 048
     Dates: start: 20120928, end: 20121023
  15. KREMEZIN [Concomitant]
     Indication: AZOTAEMIA
     Dosage: UNK
     Dates: start: 20121016, end: 20121024
  16. URSO [Concomitant]
     Indication: HEPATIC FUNCTION ABNORMAL
     Dosage: UNK
     Dates: start: 20121009, end: 20121022
  17. LASIX (FUROSEMIDE SODIUM) [Concomitant]
     Dosage: UNK
     Dates: start: 20121024
  18. MIRCERA [Concomitant]
     Indication: NEPHROGENIC ANAEMIA
     Dosage: UNK
     Dates: start: 20121025, end: 20121025
  19. FULCALIQ [Concomitant]
     Indication: PARENTERAL NUTRITION
     Dosage: UNK
     Dates: start: 20121030, end: 20121101

REACTIONS (2)
  - Altered state of consciousness [Recovering/Resolving]
  - Hyperammonaemia [Not Recovered/Not Resolved]
